FAERS Safety Report 7301551-2 (Version None)
Quarter: 2011Q1

REPORT INFORMATION
  Report Type: 
  Country: None (occurrence: None)
  Receive Date: 20110218
  Receipt Date: 20110210
  Transmission Date: 20110831
  Serious: Yes (Other)
  Sender: FDA-Public Use
  Company Number: US-PFIZER INC-2010176934

PATIENT
  Sex: Female

DRUGS (4)
  1. FLOVENT [Concomitant]
     Indication: NASAL POLYPS
     Dosage: UNK
  2. PRILOSEC [Concomitant]
     Indication: ABDOMINAL DISCOMFORT
     Dosage: UNK
  3. XALATAN [Suspect]
     Indication: GLAUCOMA
     Dosage: 1 GTT, 1X/DAY EACH EYE
     Route: 047
     Dates: start: 20090101
  4. NASONEX [Concomitant]
     Indication: NASAL POLYPS
     Dosage: UNK
     Route: 045

REACTIONS (2)
  - HEARING IMPAIRED [None]
  - HYPERSENSITIVITY [None]
